FAERS Safety Report 7445866-6 (Version None)
Quarter: 2011Q2

REPORT INFORMATION
  Report Type: 
  Country: None (occurrence: None)
  Receive Date: 20110419
  Receipt Date: 20110405
  Transmission Date: 20111010
  Serious: Yes (Hospitalization, Other)
  Sender: FDA-Public Use
  Company Number: 030739

PATIENT
  Sex: Female
  Weight: 73 kg

DRUGS (14)
  1. IBUPROFEN [Concomitant]
  2. CIMZIA [Suspect]
     Indication: CROHN'S DISEASE
     Dosage: 9400 MG 1X/2 WEEKS SUBCUTANEOUS), (400 MG 1X/MONTH SUBCUTANEOUS)
     Route: 058
     Dates: start: 20091109, end: 20091207
  3. CIMZIA [Suspect]
     Indication: CROHN'S DISEASE
     Dosage: 9400 MG 1X/2 WEEKS SUBCUTANEOUS), (400 MG 1X/MONTH SUBCUTANEOUS)
     Route: 058
     Dates: start: 20100104
  4. LOPERAMIDE [Concomitant]
  5. AMITRIPTYLINE HCL [Concomitant]
  6. ALLEGRA [Concomitant]
  7. METHOTREXATE [Suspect]
     Indication: CROHN'S DISEASE
     Dates: start: 20000101, end: 20020101
  8. METHOTREXATE [Suspect]
     Indication: CROHN'S DISEASE
     Dates: start: 20080703, end: 20090304
  9. METHOTREXATE [Suspect]
     Indication: CROHN'S DISEASE
     Dates: start: 20071001, end: 20080101
  10. METHOTREXATE [Suspect]
     Indication: CROHN'S DISEASE
     Dates: start: 20090501
  11. BENADRYL [Concomitant]
  12. AZITHROMYCIN [Concomitant]
  13. ALBUTEROL [Concomitant]
  14. ACETAMINOPHEN [Concomitant]

REACTIONS (24)
  - INTESTINAL RESECTION [None]
  - FIBROMYALGIA [None]
  - ENTEROCOCCAL INFECTION [None]
  - OPPORTUNISTIC INFECTION [None]
  - SEPTIC SHOCK [None]
  - STAPHYLOCOCCAL INFECTION [None]
  - CELLULITIS [None]
  - SHORT-BOWEL SYNDROME [None]
  - ABDOMINAL WALL ABSCESS [None]
  - RENAL FAILURE ACUTE [None]
  - GENITAL HERPES [None]
  - NAUSEA [None]
  - ARTHRITIS [None]
  - FISTULA [None]
  - CATHETER SITE INFECTION [None]
  - INFLUENZA [None]
  - STAPHYLOCOCCAL BACTERAEMIA [None]
  - KLEBSIELLA SEPSIS [None]
  - SMALL INTESTINAL OBSTRUCTION [None]
  - DEHYDRATION [None]
  - PSORIASIS [None]
  - ARTHRALGIA [None]
  - DEVICE RELATED INFECTION [None]
  - VOMITING [None]
